FAERS Safety Report 12760673 (Version 1)
Quarter: 2016Q3

REPORT INFORMATION
  Report Type: Spontaneous
  Country: MX (occurrence: MX)
  Receive Date: 20160919
  Receipt Date: 20160919
  Transmission Date: 20161109
  Serious: Yes (Death, Hospitalization)
  Sender: FDA-Public Use
  Company Number: MX-TEVA-693014ISR

PATIENT
  Age: 67 Year
  Sex: Female

DRUGS (1)
  1. DICLOXACILLIN [Suspect]
     Active Substance: DICLOXACILLIN
     Indication: CONJUNCTIVITIS
     Route: 065

REACTIONS (3)
  - Septic shock [Fatal]
  - Eye disorder [Fatal]
  - Toxic epidermal necrolysis [Fatal]
